FAERS Safety Report 24421908 (Version 3)
Quarter: 2025Q3

REPORT INFORMATION
  Report Type: Spontaneous
  Country: EU (occurrence: EU)
  Receive Date: 20241010
  Receipt Date: 20250802
  Transmission Date: 20251021
  Serious: Yes (Other)
  Sender: ALEXION PHARMACEUTICALS
  Company Number: EU-AstraZeneca-CH-00712420A

PATIENT
  Sex: Female

DRUGS (3)
  1. TICAGRELOR [Suspect]
     Active Substance: TICAGRELOR
  2. Acard [Concomitant]
     Route: 065
  3. CLOPIDOGREL [Concomitant]
     Active Substance: CLOPIDOGREL BISULFATE
     Route: 065

REACTIONS (6)
  - Contusion [Unknown]
  - Contusion [Unknown]
  - Epistaxis [Unknown]
  - Mobility decreased [Unknown]
  - Head injury [Unknown]
  - Subarachnoid haematoma [Unknown]

NARRATIVE: CASE EVENT DATE: 20240801
